FAERS Safety Report 19714781 (Version 1)
Quarter: 2021Q3

REPORT INFORMATION
  Report Type: Spontaneous
  Country: US (occurrence: US)
  Receive Date: 20210818
  Receipt Date: 20210818
  Transmission Date: 20211014
  Serious: No
  Sender: FDA-Public Use
  Company Number: US-JNJFOC-20210819842

PATIENT
  Age: 58 Year
  Sex: Male

DRUGS (3)
  1. TYLENOL [Suspect]
     Active Substance: ACETAMINOPHEN
     Indication: BACK PAIN
  2. TYLENOL [Suspect]
     Active Substance: ACETAMINOPHEN
     Indication: ARTHRALGIA
     Route: 065
     Dates: start: 202105
  3. DUPIXENT [Concomitant]
     Active Substance: DUPILUMAB
     Indication: ASTHMA
     Route: 058
     Dates: start: 20210525

REACTIONS (1)
  - Rash [Unknown]

NARRATIVE: CASE EVENT DATE: 202105
